FAERS Safety Report 8595808-5 (Version None)
Quarter: 2012Q3

REPORT INFORMATION
  Report Type: 
  Country: None (occurrence: None)
  Receive Date: 20120815
  Receipt Date: 20120809
  Transmission Date: 20120928
  Serious: Yes (Death)
  Sender: FDA-Public Use
  Company Number: US-ROCHE-1095208

PATIENT
  Sex: Male
  Weight: 81.72 kg

DRUGS (1)
  1. LUCENTIS [Suspect]
     Indication: AGE-RELATED MACULAR DEGENERATION
     Route: 042
     Dates: start: 20101123, end: 20120605

REACTIONS (1)
  - DEATH [None]
